FAERS Safety Report 8972934 (Version 1)
Quarter: 2012Q4

REPORT INFORMATION
  Report Type: 
  Country: US (occurrence: US)
  Receive Date: 20121218
  Receipt Date: 20121218
  Transmission Date: 20130627
  Serious: Yes (Other)
  Sender: FDA-Public Use
  Company Number: US-BRISTOL-MYERS SQUIBB COMPANY-16451924

PATIENT
  Age: 52 Year
  Sex: Female

DRUGS (1)
  1. ABILIFY [Suspect]
     Indication: MAJOR DEPRESSION
     Dosage: started 2mg in Jan12:Dose increased to 5mg on 31Jan2012
     Dates: start: 201201

REACTIONS (1)
  - Muscle spasms [Unknown]
